FAERS Safety Report 6582276-8 (Version None)
Quarter: 2010Q1

REPORT INFORMATION
  Report Type: 
  Country: None (occurrence: None)
  Receive Date: 20100216
  Receipt Date: 20100118
  Transmission Date: 20100710
  Serious: No
  Sender: FDA-Public Use
  Company Number: A0839944A

PATIENT
  Age: 54 Year
  Sex: Female

DRUGS (1)
  1. VERAMYST [Suspect]
     Dosage: 2SPR VARIABLE DOSE
     Route: 045
     Dates: start: 20090101

REACTIONS (2)
  - EPISTAXIS [None]
  - PRODUCT QUALITY ISSUE [None]
